FAERS Safety Report 20995209 (Version 1)
Quarter: 2022Q2

REPORT INFORMATION
  Report Type: Spontaneous
  Country: DE (occurrence: DE)
  Receive Date: 20220622
  Receipt Date: 20220622
  Transmission Date: 20220721
  Serious: Yes (Other)
  Sender: FDA-Public Use
  Company Number: DE-REDHILL BIOPHARMA-2022RDH00117

PATIENT
  Age: 53 Year
  Sex: Female
  Weight: 50 kg

DRUGS (11)
  1. NALOXEGOL OXALATE [Suspect]
     Active Substance: NALOXEGOL OXALATE
     Indication: Product used for unknown indication
     Route: 048
  2. PALEXIA [Concomitant]
     Active Substance: TAPENTADOL HYDROCHLORIDE
  3. OXYCODONE [Concomitant]
     Active Substance: OXYCODONE
  4. AMITRIPTYLINE [Concomitant]
     Active Substance: AMITRIPTYLINE
  5. LAXANS AL [Concomitant]
  6. HYDROCHLOROTHIAZIDE [Concomitant]
     Active Substance: HYDROCHLOROTHIAZIDE
  7. IBUPROFEN [Concomitant]
     Active Substance: IBUPROFEN
  8. PANTOPRAZOLE [Concomitant]
     Active Substance: PANTOPRAZOLE
  9. DIMETHICONE [Concomitant]
     Active Substance: DIMETHICONE
  10. FUROSEMIDE [Concomitant]
     Active Substance: FUROSEMIDE
  11. KALINOR [Concomitant]

REACTIONS (9)
  - Delirium [Unknown]
  - Electrocardiogram QT prolonged [Unknown]
  - Confusional state [Unknown]
  - Disorientation [Unknown]
  - Decreased appetite [Unknown]
  - Alkalosis [Unknown]
  - Blood potassium decreased [Unknown]
  - Hypotension [Unknown]
  - Diastolic hypotension [Unknown]

NARRATIVE: CASE EVENT DATE: 20220606
